FAERS Safety Report 10724585 (Version 1)
Quarter: 2015Q1

REPORT INFORMATION
  Report Type: Spontaneous
  Country: IR (occurrence: IR)
  Receive Date: 20150120
  Receipt Date: 20150120
  Transmission Date: 20150721
  Serious: Yes (Hospitalization)
  Sender: FDA-Public Use
  Company Number: IR-MYLANLABS-2015M1000886

PATIENT

DRUGS (2)
  1. METFORMIN [Suspect]
     Active Substance: METFORMIN HYDROCHLORIDE
     Indication: OFF LABEL USE
  2. METFORMIN [Suspect]
     Active Substance: METFORMIN HYDROCHLORIDE
     Indication: OVULATION INDUCTION
     Dosage: 1500 MG, QD
     Route: 065

REACTIONS (5)
  - Haematocrit decreased [None]
  - Maternal exposure before pregnancy [None]
  - Ruptured ectopic pregnancy [None]
  - Ovarian adenoma [Recovering/Resolving]
  - Ectopic pregnancy [Recovering/Resolving]
